FAERS Safety Report 21907988 (Version 1)
Quarter: 2023Q1

REPORT INFORMATION
  Report Type: Spontaneous
  Country: US (occurrence: None)
  Receive Date: 20230124
  Receipt Date: 20230124
  Transmission Date: 20230418
  Serious: Yes (Other)
  Sender: FDA-Public Use
  Company Number: None

PATIENT
  Age: 69 Year
  Sex: Male
  Weight: 99.9 kg

DRUGS (14)
  1. PYLARIFY [Suspect]
     Active Substance: PIFLUFOLASTAT F-18
     Indication: Prostate cancer
     Dates: start: 20221228, end: 20221228
  2. PYLARIFY [Suspect]
     Active Substance: PIFLUFOLASTAT F-18
     Indication: Scan with contrast
  3. WARFARIN [Concomitant]
     Active Substance: WARFARIN
  4. VELPHORO [Concomitant]
     Active Substance: SUCROFERRIC OXYHYDROXIDE
  5. sevlamer carbonate [Concomitant]
  6. atorvistatin [Concomitant]
  7. DULOXETINE [Concomitant]
     Active Substance: DULOXETINE
  8. FENOFIBRATE [Concomitant]
     Active Substance: FENOFIBRATE
  9. PANTOPRAZOLE SODIUM [Concomitant]
     Active Substance: PANTOPRAZOLE SODIUM
  10. TRADJENTA [Concomitant]
     Active Substance: LINAGLIPTIN
  11. FOLIC ACID [Concomitant]
     Active Substance: FOLIC ACID
  12. MULTI-VITAMIN [Concomitant]
     Active Substance: .ALPHA.-TOCOPHEROL ACETATE, DL-\ASCORBIC ACID\CYANOCOBALAMIN\FLUORIDE ION\FOLIC ACID\NIACIN\PYRIDOXI
  13. MAGNESIUM [Concomitant]
     Active Substance: MAGNESIUM
  14. linguine [Concomitant]

REACTIONS (3)
  - Hemihypoaesthesia [None]
  - Dialysis [None]
  - Blood pressure abnormal [None]

NARRATIVE: CASE EVENT DATE: 20221228
